FAERS Safety Report 6098913-0 (Version None)
Quarter: 2009Q1

REPORT INFORMATION
  Report Type: 
  Country: None (occurrence: None)
  Receive Date: 20090302
  Receipt Date: 20090223
  Transmission Date: 20090719
  Serious: Yes (Hospitalization)
  Sender: FDA-Public Use
  Company Number: AE-JNJFOC-20090204052

PATIENT
  Sex: Female
  Weight: 122 kg

DRUGS (7)
  1. REMICADE [Suspect]
     Indication: JUVENILE ARTHRITIS
     Dosage: ONE INFUSION GIVEN
     Route: 042
  2. CYCLOSPORINE [Suspect]
     Indication: DRUG USE FOR UNKNOWN INDICATION
     Route: 048
  3. PREDINISONE [Suspect]
     Indication: DRUG USE FOR UNKNOWN INDICATION
     Route: 048
  4. METOPROLOL [Concomitant]
     Route: 048
  5. ASPIRIN [Concomitant]
     Route: 048
  6. LOSEC [Concomitant]
     Route: 048
  7. IRBESARTAN [Concomitant]
     Route: 048

REACTIONS (15)
  - ANAEMIA [None]
  - BACTERIAL INFECTION [None]
  - CHILLS [None]
  - DYSPNOEA [None]
  - GASTROENTERITIS [None]
  - HEPATOMEGALY [None]
  - HYPOTENSION [None]
  - HYPOXIA [None]
  - OVARIAN CYST [None]
  - PLATELET COUNT INCREASED [None]
  - PYREXIA [None]
  - RASH PRURITIC [None]
  - SEPSIS [None]
  - TACHYCARDIA [None]
  - VIRAL INFECTION [None]
